FAERS Safety Report 18507197 (Version 1)
Quarter: 2020Q4

REPORT INFORMATION
  Report Type: Spontaneous
  Country: PS (occurrence: PS)
  Receive Date: 20201116
  Receipt Date: 20201116
  Transmission Date: 20210114
  Serious: Yes (Other)
  Sender: FDA-Public Use
  Company Number: PS-EMD SERONO-9198433

PATIENT
  Age: 42 Year
  Sex: Female
  Weight: 55 kg

DRUGS (2)
  1. MAVENCLAD [Suspect]
     Active Substance: CLADRIBINE
     Indication: MULTIPLE SCLEROSIS
     Dosage: FIRST YEAR THERAPY
     Route: 048
  2. MAVENCLAD [Suspect]
     Active Substance: CLADRIBINE
     Dosage: SECOND YEAR THERAPY: THE LAST DOSE PRIOR TO THE AE WA ON 05 NOV 2020 AND STOPPED ON 06 NOV 2020
     Route: 048
     Dates: start: 20201105, end: 20201106

REACTIONS (5)
  - Cough [Recovered/Resolved]
  - Pyrexia [Recovered/Resolved]
  - Exposure to SARS-CoV-2 [Unknown]
  - Suspected COVID-19 [Recovered/Resolved]
  - Fatigue [Recovered/Resolved]

NARRATIVE: CASE EVENT DATE: 202011
